FAERS Safety Report 10868678 (Version 1)
Quarter: 2015Q1

REPORT INFORMATION
  Report Type: Spontaneous
  Country: JP (occurrence: JP)
  Receive Date: 20150225
  Receipt Date: 20150225
  Transmission Date: 20150721
  Serious: Yes (Other)
  Sender: FDA-Public Use
  Company Number: JP-PFIZER INC-2014315678

PATIENT
  Age: 80 Year
  Sex: Male

DRUGS (8)
  1. ANAEMETRO [Suspect]
     Active Substance: METRONIDAZOLE
     Dosage: 500 MG, 1X/DAY
     Route: 041
     Dates: start: 20141112, end: 20141112
  2. BAKTAR [Concomitant]
     Active Substance: SULFAMETHOXAZOLE\TRIMETHOPRIM
     Dosage: UNK
     Route: 048
  3. FUNGUARD [Concomitant]
     Active Substance: MICAFUNGIN SODIUM
  4. PREDONINE [Concomitant]
     Active Substance: PREDNISOLONE\PREDNISOLONE ACETATE\PREDNISOLONE SODIUM SUCCINATE
     Dosage: 35 MG, FREQUENCY UNKNOWN
  5. MEROPEN [Concomitant]
     Active Substance: MEROPENEM
  6. GASTER [Concomitant]
     Active Substance: FAMOTIDINE
  7. ANAEMETRO [Suspect]
     Active Substance: METRONIDAZOLE
     Dosage: 500 MG, 3X/DAY
     Route: 041
     Dates: start: 20141113, end: 20141113
  8. ANAEMETRO [Suspect]
     Active Substance: METRONIDAZOLE
     Dosage: 500 MG, 2X/DAY
     Route: 041
     Dates: start: 20141114, end: 20141114

REACTIONS (1)
  - Haemoglobin decreased [Unknown]

NARRATIVE: CASE EVENT DATE: 20141112
